FAERS Safety Report 7303906-9 (Version None)
Quarter: 2011Q1

REPORT INFORMATION
  Report Type: 
  Country: None (occurrence: None)
  Receive Date: 20110221
  Receipt Date: 20110214
  Transmission Date: 20110831
  Serious: Yes (Hospitalization)
  Sender: FDA-Public Use
  Company Number: B0701138A

PATIENT
  Age: 55 Year
  Sex: Female

DRUGS (4)
  1. PARACETAMOL [Concomitant]
     Dosage: 500MG TWICE PER DAY
     Route: 065
  2. RANITIDINE [Suspect]
     Dosage: 50MG TWICE PER DAY
     Route: 042
  3. ROXITHROMYCIN [Concomitant]
     Dosage: 150MG TWICE PER DAY
     Route: 065
  4. ONDANSERTRON HCL [Concomitant]
     Route: 042

REACTIONS (2)
  - NEUTROPENIA [None]
  - THROMBOCYTOPENIA [None]
